FAERS Safety Report 12206814 (Version 1)
Quarter: 2016Q1

REPORT INFORMATION
  Report Type: Spontaneous
  Country: US (occurrence: None)
  Receive Date: 20160323
  Receipt Date: 20160323
  Transmission Date: 20160526
  Serious: Yes (Other)
  Sender: FDA-Public Use
  Company Number: None

PATIENT
  Age: 53 Year
  Sex: Female
  Weight: 120.2 kg

DRUGS (28)
  1. IOTIN [Concomitant]
  2. ABILIFY [Suspect]
     Active Substance: ARIPIPRAZOLE
     Indication: BIPOLAR DISORDER
     Dosage: 1 PILL ONCE DAILY TAKEN BY MOUTH
     Route: 048
  3. LEVOTHYROXINE. [Concomitant]
     Active Substance: LEVOTHYROXINE
  4. VITAMIN D3 [Concomitant]
     Active Substance: CHOLECALCIFEROL
  5. ASPIRIN. [Concomitant]
     Active Substance: ASPIRIN
  6. LAMICTAL [Concomitant]
     Active Substance: LAMOTRIGINE
  7. PROPANLOL [Concomitant]
  8. LOAZEPAM [Concomitant]
  9. KRILL OIL [Concomitant]
     Active Substance: DIETARY SUPPLEMENT
  10. COQ10 [Concomitant]
     Active Substance: UBIDECARENONE
  11. MAGNESIUM [Concomitant]
     Active Substance: MAGNESIUM
  12. IBUPROFEN. [Concomitant]
     Active Substance: IBUPROFEN
  13. GABAPENTIN. [Concomitant]
     Active Substance: GABAPENTIN
  14. BUSPAR [Concomitant]
     Active Substance: BUSPIRONE HYDROCHLORIDE
  15. ABILIFY [Concomitant]
     Active Substance: ARIPIPRAZOLE
  16. TUMERIC [Concomitant]
     Active Substance: TURMERIC
  17. GREEN TEA EXTRACT [Concomitant]
  18. CRANBERRY. [Concomitant]
     Active Substance: CRANBERRY
  19. LITHIUM CARBONATE. [Concomitant]
     Active Substance: LITHIUM CARBONATE
  20. SIMVASTATIN. [Concomitant]
     Active Substance: SIMVASTATIN
  21. CARBAMAZEPINE. [Concomitant]
     Active Substance: CARBAMAZEPINE
  22. LUTEIN [Concomitant]
     Active Substance: LUTEIN
  23. RASPBERRY KETONES [Concomitant]
     Active Substance: RASPBERRY KETONE
  24. MILK THISTLE [Concomitant]
     Active Substance: MILK THISTLE
  25. GARLIC. [Concomitant]
     Active Substance: GARLIC
  26. EVENING PRIMROSE OIL [Concomitant]
     Active Substance: EVENING PRIMROSE OIL
  27. MULTIVITAMIN [Concomitant]
     Active Substance: VITAMINS
  28. FOLIC ACID. [Concomitant]
     Active Substance: FOLIC ACID

REACTIONS (6)
  - Restless legs syndrome [None]
  - Drug withdrawal syndrome [None]
  - Akathisia [None]
  - Insomnia [None]
  - Suicidal ideation [None]
  - Apparent death [None]
